FAERS Safety Report 12650719 (Version 1)
Quarter: 2016Q3

REPORT INFORMATION
  Report Type: Spontaneous
  Country: US (occurrence: US)
  Receive Date: 20160815
  Receipt Date: 20160815
  Transmission Date: 20161109
  Serious: No
  Sender: FDA-Public Use
  Company Number: US-JAZZ-2016-US-004667

PATIENT
  Age: 44 Year
  Sex: Male
  Weight: 85.26 kg

DRUGS (11)
  1. XYREM [Suspect]
     Active Substance: SODIUM OXYBATE
     Indication: NARCOLEPSY
     Dosage: 2.5 G, BID
     Dates: start: 201403, end: 201404
  2. XYREM [Suspect]
     Active Substance: SODIUM OXYBATE
     Indication: CATAPLEXY
     Dosage: 4 G, BID
     Route: 048
     Dates: start: 201404
  3. MAXALT [Concomitant]
     Active Substance: RIZATRIPTAN BENZOATE
  4. IMITREX [Concomitant]
     Active Substance: SUMATRIPTAN SUCCINATE
     Indication: MIGRAINE
  5. SODIUM CHLORIDE. [Concomitant]
     Active Substance: SODIUM CHLORIDE
     Indication: ELECTROLYTE IMBALANCE
     Dosage: 1 G, TID
  6. ACIPHEX [Concomitant]
     Active Substance: RABEPRAZOLE SODIUM
     Indication: HIATUS HERNIA
  7. NUVIGIL [Concomitant]
     Active Substance: ARMODAFINIL
  8. XYREM [Suspect]
     Active Substance: SODIUM OXYBATE
     Dosage: 4.5 G, BID
     Route: 048
     Dates: start: 201602
  9. PROVIGIL [Concomitant]
     Active Substance: MODAFINIL
     Indication: SOMNOLENCE
  10. IRON [Concomitant]
     Active Substance: IRON
     Indication: BLOOD IRON DECREASED
     Dosage: 16 MG, QD
     Dates: start: 201509
  11. CAMBIA [Concomitant]
     Active Substance: DICLOFENAC POTASSIUM

REACTIONS (2)
  - Pneumonia [Recovered/Resolved]
  - Snoring [Recovering/Resolving]

NARRATIVE: CASE EVENT DATE: 201601
